FAERS Safety Report 20799391 (Version 1)
Quarter: 2022Q2

REPORT INFORMATION
  Report Type: Report from Study
  Country: US (occurrence: US)
  Receive Date: 20220508
  Receipt Date: 20220508
  Transmission Date: 20220721
  Serious: Yes (Hospitalization)
  Sender: FDA-Public Use
  Company Number: US-ABBVIE-22K-163-4383385-00

PATIENT
  Age: 70 Year
  Sex: Male

DRUGS (1)
  1. VENCLEXTA [Suspect]
     Active Substance: VENETOCLAX
     Indication: Acute myeloid leukaemia
     Dosage: TAKE TWO TABLETS BY MOUTH ONCE DAILY WITH FOOD AND FULL GLASS OF WATER
     Route: 048

REACTIONS (2)
  - Gait inability [Unknown]
  - Dysstasia [Unknown]

NARRATIVE: CASE EVENT DATE: 20220426
